FAERS Safety Report 5417883-9 (Version None)
Quarter: 2007Q3

REPORT INFORMATION
  Report Type: 
  Country: None (occurrence: None)
  Receive Date: 20070815
  Receipt Date: 20070808
  Transmission Date: 20080115
  Serious: Yes (Hospitalization)
  Sender: FDA-Public Use
  Company Number: 2006SP002721

PATIENT
  Age: 52 Year
  Sex: Male
  Weight: 52 kg

DRUGS (11)
  1. PEG-INTRON [Suspect]
     Indication: HEPATITIS C
     Dosage: 100 MCG; QW; SC
     Route: 058
     Dates: start: 20060512, end: 20060907
  2. REBETOL [Suspect]
     Indication: HEPATITIS C
     Dosage: 800 MG; ; PO, 600 MG; ; PO
     Route: 048
     Dates: start: 20060512, end: 20060614
  3. REBETOL [Suspect]
     Indication: HEPATITIS C
     Dosage: 800 MG; ; PO, 600 MG; ; PO
     Route: 048
     Dates: start: 20060615, end: 20060907
  4. DOGMATYL              (SULPIRIDE) [Suspect]
     Indication: BIPOLAR I DISORDER
     Dosage: 150 MG; ; PO
     Route: 048
     Dates: start: 20060831, end: 20060921
  5. DOGMATYL              (SULPIRIDE) [Suspect]
     Indication: INSOMNIA
     Dosage: 150 MG; ; PO
     Route: 048
     Dates: start: 20060831, end: 20060921
  6. PERPHENAZINE [Suspect]
     Indication: BIPOLAR I DISORDER
     Dosage: 2 MG; ; PO
     Route: 048
     Dates: start: 20060713, end: 20060921
  7. PERPHENAZINE [Suspect]
     Indication: INSOMNIA
     Dosage: 2 MG; ; PO
     Route: 048
     Dates: start: 20060713, end: 20060921
  8. CONTMIN            (CHLORPROMAZINE) [Suspect]
     Indication: BIPOLAR I DISORDER
     Dosage: 12.5 MG; ; PO
     Route: 048
     Dates: start: 20041109, end: 20060921
  9. CONTMIN            (CHLORPROMAZINE) [Suspect]
     Indication: INSOMNIA
     Dosage: 12.5 MG; ; PO
     Route: 048
     Dates: start: 20041109, end: 20060921
  10. PAXIL [Concomitant]
  11. ROHYPNOL [Concomitant]

REACTIONS (12)
  - ANAEMIA [None]
  - ANOREXIA [None]
  - BIPOLAR I DISORDER [None]
  - CEREBRAL ATROPHY [None]
  - DIARRHOEA [None]
  - DYSPHAGIA [None]
  - DYSSTASIA [None]
  - INSOMNIA [None]
  - PARKINSONISM [None]
  - SPEECH DISORDER [None]
  - TONGUE PARALYSIS [None]
  - WEIGHT DECREASED [None]
